FAERS Safety Report 24282510 (Version 6)
Quarter: 2024Q4

REPORT INFORMATION
  Report Type: Other
  Country: US (occurrence: US)
  Receive Date: 20240904
  Receipt Date: 20241023
  Transmission Date: 20250114
  Serious: Yes (Hospitalization, Other)
  Sender: TRAVERE THERAPEUTICS
  Company Number: US-TRAVERE-2024TVT00871

PATIENT
  Age: 59 Year
  Sex: Female

DRUGS (24)
  1. FILSPARI [Suspect]
     Active Substance: SPARSENTAN
     Indication: IgA nephropathy
     Route: 048
     Dates: start: 20240823, end: 20241004
  2. FILSPARI [Suspect]
     Active Substance: SPARSENTAN
     Route: 048
     Dates: start: 20240809, end: 20240822
  3. ASPIRIN [Concomitant]
     Active Substance: ASPIRIN
  4. CEPHALEXIN [Concomitant]
     Active Substance: CEPHALEXIN
  5. COLCHICINE [Concomitant]
     Active Substance: COLCHICINE
  6. CYCLOBENZAPRINE [Concomitant]
     Active Substance: CYCLOBENZAPRINE
  7. DICLOFENAC [Concomitant]
     Active Substance: DICLOFENAC
  8. DOCUSATE SODIUM [Concomitant]
     Active Substance: DOCUSATE SODIUM
  9. DULOXETINE [Concomitant]
     Active Substance: DULOXETINE
  10. FUROSEMIDE [Concomitant]
     Active Substance: FUROSEMIDE
  11. GABAPENTIN [Concomitant]
     Active Substance: GABAPENTIN
  12. HYDRALAZINE [Concomitant]
     Active Substance: HYDRALAZINE HYDROCHLORIDE
  13. HYDROCODONE [Concomitant]
     Active Substance: HYDROCODONE
  14. LEVOTHYROXINE SODIUM [Concomitant]
     Active Substance: LEVOTHYROXINE SODIUM
  15. MAGNESIUM OXIDE [Concomitant]
     Active Substance: MAGNESIUM OXIDE
  16. METOPROLOL TARTRATE [Concomitant]
     Active Substance: METOPROLOL TARTRATE
  17. MONTELUKAST [Concomitant]
     Active Substance: MONTELUKAST
  18. MOUNJARO [Concomitant]
     Active Substance: TIRZEPATIDE
  19. MYRBETRIQ [Concomitant]
     Active Substance: MIRABEGRON
  20. PILOCARPINE [Concomitant]
     Active Substance: PILOCARPINE
  21. PLAQUENIL [Concomitant]
     Active Substance: HYDROXYCHLOROQUINE SULFATE
  22. ROPINIROLE [Concomitant]
     Active Substance: ROPINIROLE
  23. TRAZODONE [Concomitant]
     Active Substance: TRAZODONE HYDROCHLORIDE
  24. TRIAMCINOLONE ACETONIDE [Concomitant]
     Active Substance: TRIAMCINOLONE ACETONIDE

REACTIONS (7)
  - Localised infection [Unknown]
  - Lymphoedema [Unknown]
  - Acute kidney injury [Unknown]
  - Fluid retention [None]
  - Renal disorder [Unknown]
  - Feeling abnormal [Unknown]
  - Adverse drug reaction [Unknown]
